FAERS Safety Report 13042623 (Version 1)
Quarter: 2016Q4

REPORT INFORMATION
  Report Type: Spontaneous
  Country: US (occurrence: US)
  Receive Date: 20161219
  Receipt Date: 20161219
  Transmission Date: 20170207
  Serious: Yes (Other)
  Sender: FDA-Public Use
  Company Number: US-MYLANLABS-2016M1055297

PATIENT

DRUGS (3)
  1. ARGININE [Concomitant]
     Active Substance: ARGININE
     Indication: MELAS SYNDROME
     Route: 065
  2. METFORMIN [Suspect]
     Active Substance: METFORMIN HYDROCHLORIDE
     Indication: MELAS SYNDROME
     Route: 065
  3. UBIDECARENONE [Concomitant]
     Active Substance: UBIDECARENONE
     Indication: MELAS SYNDROME
     Route: 065

REACTIONS (4)
  - Blindness cortical [Unknown]
  - Status epilepticus [Unknown]
  - Lactic acidosis [Unknown]
  - Product use issue [Unknown]
